FAERS Safety Report 5777916-7 (Version None)
Quarter: 2008Q2

REPORT INFORMATION
  Report Type: 
  Country: None (occurrence: None)
  Receive Date: 20080618
  Receipt Date: 20080605
  Transmission Date: 20081010
  Serious: Yes (Other)
  Sender: FDA-Public Use
  Company Number: JP-GENENTECH-257178

PATIENT
  Sex: Male

DRUGS (6)
  1. BEVACIZUMAB [Suspect]
     Indication: COLON CANCER METASTATIC
     Dosage: 5 MG/KG, Q2W
     Route: 042
     Dates: start: 20071016, end: 20071211
  2. OXALIPLATIN [Concomitant]
     Indication: COLON CANCER METASTATIC
     Dates: start: 20071016, end: 20071127
  3. FLUOROURACIL [Concomitant]
     Indication: COLON CANCER METASTATIC
     Dates: start: 20071016, end: 20071211
  4. ISOVORIN [Concomitant]
     Indication: COLON CANCER METASTATIC
     Dates: start: 20071016, end: 20071211
  5. LOSARTAN POTASSIUM [Concomitant]
     Indication: DRUG USE FOR UNKNOWN INDICATION
     Dates: end: 20080605
  6. NORVASC [Concomitant]
     Indication: DRUG USE FOR UNKNOWN INDICATION
     Dates: end: 20080605

REACTIONS (1)
  - ARRHYTHMIA [None]
